FAERS Safety Report 11742853 (Version 3)
Quarter: 2016Q1

REPORT INFORMATION
  Report Type: Spontaneous
  Country: US (occurrence: US)
  Receive Date: 20151116
  Receipt Date: 20160229
  Transmission Date: 20160525
  Serious: Yes (Hospitalization, Other)
  Sender: FDA-Public Use
  Company Number: US-JNJFOC-20151112646

PATIENT
  Sex: Female
  Weight: 86.18 kg

DRUGS (1)
  1. XARELTO [Suspect]
     Active Substance: RIVAROXABAN
     Indication: CEREBROVASCULAR ACCIDENT
     Route: 048
     Dates: start: 201410, end: 20141122

REACTIONS (9)
  - Cerebral haemorrhage [Recovering/Resolving]
  - Ecchymosis [Unknown]
  - Schizoaffective disorder [Unknown]
  - Cerebrovascular accident [Recovering/Resolving]
  - Encephalopathy [Recovering/Resolving]
  - Bipolar disorder [Unknown]
  - Off label use [Unknown]
  - Product use issue [Unknown]
  - Fall [Unknown]

NARRATIVE: CASE EVENT DATE: 2014
